FAERS Safety Report 15958716 (Version 1)
Quarter: 2019Q1

REPORT INFORMATION
  Report Type: Spontaneous
  Country: US (occurrence: US)
  Receive Date: 20190213
  Receipt Date: 20190213
  Transmission Date: 20190417
  Serious: No
  Sender: FDA-Public Use
  Company Number: US-PURDUE-USA-2018-0144729

PATIENT
  Age: 62 Year
  Sex: Female

DRUGS (4)
  1. BUPRENORPHINE TRANSDERMAL PATCH (SIMILAR TO NDA 21-306) [Suspect]
     Active Substance: BUPRENORPHINE
     Indication: PAIN
     Dosage: 20 MCG/HR, WEEKLY
     Route: 062
     Dates: start: 201808, end: 201808
  2. BUPRENORPHINE TRANSDERMAL PATCH (SIMILAR TO NDA 21-306) [Suspect]
     Active Substance: BUPRENORPHINE
     Dosage: 15 MCG/HR, WEEKLY
     Route: 062
     Dates: start: 201807, end: 201808
  3. HYDROXYZINE [Suspect]
     Active Substance: HYDROXYZINE HYDROCHLORIDE
     Indication: PRURITUS
     Dosage: 1 TABLET, HS
     Route: 048
     Dates: start: 201808, end: 201808
  4. BUPRENORPHINE TRANSDERMAL PATCH (SIMILAR TO NDA 21-306) [Suspect]
     Active Substance: BUPRENORPHINE
     Dosage: 10 MCG/HR, WEEKLY
     Route: 062
     Dates: start: 201806, end: 201807

REACTIONS (3)
  - Somnolence [Recovered/Resolved]
  - Application site burn [Not Recovered/Not Resolved]
  - Pruritus [Not Recovered/Not Resolved]

NARRATIVE: CASE EVENT DATE: 201807
